FAERS Safety Report 16757021 (Version 1)
Quarter: 2019Q3

REPORT INFORMATION
  Report Type: Spontaneous
  Country: US (occurrence: US)
  Receive Date: 20190829
  Receipt Date: 20190829
  Transmission Date: 20191005
  Serious: No
  Sender: FDA-Public Use
  Company Number: US-009507513-1908USA011512

PATIENT
  Age: 27 Year
  Sex: Female
  Weight: 63.49 kg

DRUGS (1)
  1. NEXPLANON [Suspect]
     Active Substance: ETONOGESTREL
     Indication: CONTRACEPTION
     Dosage: 3 YEARS, IMPLANT, LEFT ARM
     Route: 059
     Dates: start: 20160825

REACTIONS (4)
  - Menstrual disorder [Not Recovered/Not Resolved]
  - Incorrect product administration duration [Unknown]
  - Amenorrhoea [Recovered/Resolved]
  - Vaginal haemorrhage [Recovered/Resolved]

NARRATIVE: CASE EVENT DATE: 201908
